FAERS Safety Report 6425299-1 (Version None)
Quarter: 2009Q4

REPORT INFORMATION
  Report Type: 
  Country: None (occurrence: None)
  Receive Date: 20091102
  Receipt Date: 20091102
  Transmission Date: 20100525
  Serious: No
  Sender: FDA-Public Use
  Company Number: None

PATIENT
  Age: 70 Year
  Sex: Male
  Weight: 97.2 kg

DRUGS (1)
  1. GEMCITABINE [Suspect]
     Dosage: 2350 MG QWEEK IV
     Route: 042
     Dates: start: 20090130, end: 20090212

REACTIONS (1)
  - OEDEMA PERIPHERAL [None]
